FAERS Safety Report 24940772 (Version 1)
Quarter: 2025Q1

REPORT INFORMATION
  Report Type: Spontaneous
  Country: JP (occurrence: JP)
  Receive Date: 20250207
  Receipt Date: 20250207
  Transmission Date: 20250409
  Serious: Yes (Death, Other)
  Sender: STRIDES
  Company Number: JP-STRIDES ARCOLAB LIMITED-2025SP001761

PATIENT
  Age: 26 Year
  Sex: Female

DRUGS (28)
  1. ETOPOSIDE [Suspect]
     Active Substance: ETOPOSIDE
     Indication: Lung adenocarcinoma stage IV
     Route: 065
  2. ETOPOSIDE [Suspect]
     Active Substance: ETOPOSIDE
     Indication: EGFR gene mutation
  3. AFATINIB [Suspect]
     Active Substance: AFATINIB
     Indication: Lung adenocarcinoma stage IV
     Route: 065
  4. AFATINIB [Suspect]
     Active Substance: AFATINIB
     Indication: EGFR gene mutation
  5. CISPLATIN [Suspect]
     Active Substance: CISPLATIN
     Indication: Lung adenocarcinoma stage IV
     Route: 065
  6. CISPLATIN [Suspect]
     Active Substance: CISPLATIN
     Indication: EGFR gene mutation
  7. PEMETREXED [Suspect]
     Active Substance: PEMETREXED
     Indication: Lung adenocarcinoma stage IV
     Route: 065
  8. PEMETREXED [Suspect]
     Active Substance: PEMETREXED
     Indication: EGFR gene mutation
  9. BEVACIZUMAB [Suspect]
     Active Substance: BEVACIZUMAB
     Indication: Lung adenocarcinoma stage IV
     Route: 065
  10. BEVACIZUMAB [Suspect]
     Active Substance: BEVACIZUMAB
     Indication: EGFR gene mutation
  11. DOCETAXEL [Suspect]
     Active Substance: DOCETAXEL
     Indication: Lung adenocarcinoma stage IV
     Route: 065
  12. DOCETAXEL [Suspect]
     Active Substance: DOCETAXEL
     Indication: EGFR gene mutation
  13. RAMUCIRUMAB [Suspect]
     Active Substance: RAMUCIRUMAB
     Indication: Lung adenocarcinoma stage IV
     Route: 065
  14. RAMUCIRUMAB [Suspect]
     Active Substance: RAMUCIRUMAB
     Indication: EGFR gene mutation
  15. TS-1 [Suspect]
     Active Substance: GIMERACIL\OTERACIL POTASSIUM\TEGAFUR
     Indication: Lung adenocarcinoma stage IV
     Route: 065
  16. TS-1 [Suspect]
     Active Substance: GIMERACIL\OTERACIL POTASSIUM\TEGAFUR
     Indication: EGFR gene mutation
  17. GEMCITABINE [Suspect]
     Active Substance: GEMCITABINE
     Indication: Lung adenocarcinoma stage IV
     Route: 065
  18. GEMCITABINE [Suspect]
     Active Substance: GEMCITABINE
     Indication: EGFR gene mutation
  19. OSIMERTINIB [Suspect]
     Active Substance: OSIMERTINIB
     Indication: Lung adenocarcinoma stage IV
     Route: 065
  20. OSIMERTINIB [Suspect]
     Active Substance: OSIMERTINIB
     Indication: EGFR gene mutation
  21. PACLITAXEL [Suspect]
     Active Substance: PACLITAXEL
     Indication: Lung adenocarcinoma stage IV
     Route: 065
  22. PACLITAXEL [Suspect]
     Active Substance: PACLITAXEL
     Indication: EGFR gene mutation
  23. AMRUBICIN [Suspect]
     Active Substance: AMRUBICIN
     Indication: Lung adenocarcinoma stage IV
     Route: 065
  24. AMRUBICIN [Suspect]
     Active Substance: AMRUBICIN
     Indication: EGFR gene mutation
  25. CARBOPLATIN [Suspect]
     Active Substance: CARBOPLATIN
     Indication: Lung adenocarcinoma stage IV
     Route: 065
  26. CARBOPLATIN [Suspect]
     Active Substance: CARBOPLATIN
     Indication: EGFR gene mutation
  27. DURVALUMAB [Suspect]
     Active Substance: DURVALUMAB
     Indication: Lung adenocarcinoma stage IV
     Route: 065
  28. DURVALUMAB [Suspect]
     Active Substance: DURVALUMAB
     Indication: EGFR gene mutation

REACTIONS (3)
  - Death [Fatal]
  - Therapy non-responder [Unknown]
  - Off label use [Unknown]
